FAERS Safety Report 8415043-0 (Version None)
Quarter: 2012Q2

REPORT INFORMATION
  Report Type: 
  Country: None (occurrence: None)
  Receive Date: 20120606
  Receipt Date: 20120525
  Transmission Date: 20120825
  Serious: Yes (Other)
  Sender: FDA-Public Use
  Company Number: US-JNJFOC-20120520783

PATIENT
  Sex: Male
  Weight: 68.04 kg

DRUGS (2)
  1. AZATHIOPRINE [Suspect]
     Indication: COLITIS ULCERATIVE
     Route: 048
     Dates: end: 20120513
  2. REMICADE [Suspect]
     Indication: COLITIS ULCERATIVE
     Dosage: DOUBLE DOSE/SOLUTION
     Route: 042
     Dates: start: 20070101

REACTIONS (4)
  - BONE DISORDER [None]
  - NERVE COMPRESSION [None]
  - VIITH NERVE PARALYSIS [None]
  - HERPES ZOSTER [None]
